FAERS Safety Report 4632555-6 (Version None)
Quarter: 2005Q2

REPORT INFORMATION
  Report Type: 
  Country: None (occurrence: None)
  Receive Date: 20050411
  Receipt Date: 20050322
  Transmission Date: 20051028
  Serious: Yes (Life-Threatening, Hospitalization, Disabling)
  Sender: FDA-Public Use
  Company Number: US-MERCK-0503USA04065

PATIENT
  Age: 62 Year
  Sex: Male

DRUGS (3)
  1. ZETIA [Suspect]
     Indication: HYPERCHOLESTEROLAEMIA
     Route: 048
  2. LIPITOR [Concomitant]
     Route: 065
  3. FENOFIBRATE [Concomitant]
     Route: 065

REACTIONS (3)
  - HAEMOCHROMATOSIS [None]
  - LIVER DISORDER [None]
  - RENAL FAILURE ACUTE [None]
